FAERS Safety Report 5324505-4 (Version None)
Quarter: 2007Q2

REPORT INFORMATION
  Report Type: 
  Country: None (occurrence: None)
  Receive Date: 20070514
  Receipt Date: 20070503
  Transmission Date: 20071010
  Serious: Yes (Other)
  Sender: FDA-Public Use
  Company Number: US-PFIZER INC-2007028994

PATIENT
  Sex: Female
  Weight: 54.9 kg

DRUGS (6)
  1. LYRICA [Suspect]
     Indication: NEUROPATHY PERIPHERAL
  2. VASOTEC [Concomitant]
  3. TOPROL-XL [Concomitant]
  4. BENICAR [Concomitant]
  5. LEVOXYL [Concomitant]
  6. MEVACOR [Concomitant]

REACTIONS (6)
  - ABDOMINAL DISTENSION [None]
  - ANAEMIA [None]
  - BLOOD UREA INCREASED [None]
  - MYALGIA [None]
  - OEDEMA PERIPHERAL [None]
  - WEIGHT INCREASED [None]
